FAERS Safety Report 8715030 (Version 3)
Quarter: 2012Q4

REPORT INFORMATION
  Report Type: 
  Country: US (occurrence: US)
  Receive Date: 20120809
  Receipt Date: 20121119
  Transmission Date: 20130627
  Serious: Yes (Hospitalization, Disabling, Other)
  Sender: FDA-Public Use
  Company Number: US-JNJFOC-20120802860

PATIENT
  Age: 13 None
  Sex: Female
  Weight: 68.04 kg

DRUGS (16)
  1. HALDOL [Suspect]
     Indication: AGGRESSION
     Route: 048
     Dates: start: 19991017
  2. HALDOL [Suspect]
     Indication: AGGRESSION
     Route: 048
     Dates: start: 2008
  3. HALDOL [Suspect]
     Indication: AGGRESSION
     Dosage: as needed
     Route: 048
     Dates: start: 2009, end: 201207
  4. HALDOL [Suspect]
     Indication: PSYCHOTIC DISORDER
     Route: 048
     Dates: start: 2008
  5. HALDOL [Suspect]
     Indication: PSYCHOTIC DISORDER
     Route: 048
     Dates: start: 19991017
  6. HALDOL [Suspect]
     Indication: PSYCHOTIC DISORDER
     Dosage: as needed
     Route: 048
     Dates: start: 2009, end: 201207
  7. HALDOL [Suspect]
     Indication: MANIA
     Dosage: as needed
     Route: 048
     Dates: start: 2009, end: 201207
  8. HALDOL [Suspect]
     Indication: MANIA
     Route: 048
     Dates: start: 2008
  9. HALDOL [Suspect]
     Indication: MANIA
     Route: 048
     Dates: start: 19991017
  10. HALDOL [Suspect]
     Indication: BIPOLAR DISORDER
     Route: 048
     Dates: start: 19991017
  11. HALDOL [Suspect]
     Indication: BIPOLAR DISORDER
     Route: 048
     Dates: start: 2008
  12. HALDOL [Suspect]
     Indication: BIPOLAR DISORDER
     Dosage: as needed
     Route: 048
     Dates: start: 2009, end: 201207
  13. SAPHRIS [Concomitant]
     Indication: PSYCHOTIC DISORDER
     Route: 065
     Dates: start: 2012, end: 201207
  14. BENZTROPINE [Concomitant]
     Indication: PRODUCT USED FOR UNKNOWN INDICATION
     Route: 065
     Dates: start: 2008, end: 201207
  15. LITHIUM [Concomitant]
     Indication: BIPOLAR DISORDER
     Route: 065
     Dates: start: 2009
  16. TRAZODONE [Concomitant]
     Indication: INSOMNIA
     Dosage: at noc
     Route: 065
     Dates: start: 2009

REACTIONS (8)
  - Aggression [Recovered/Resolved]
  - Mania [Recovered/Resolved]
  - Tardive dyskinesia [Recovering/Resolving]
  - Psychotic disorder [Not Recovered/Not Resolved]
  - Disturbance in social behaviour [Recovered/Resolved]
  - Physical assault [Recovered/Resolved]
  - Impaired self-care [Not Recovered/Not Resolved]
  - Mental impairment [Recovered/Resolved]
